FAERS Safety Report 4945520-6 (Version None)
Quarter: 2006Q1

REPORT INFORMATION
  Report Type: 
  Country: None (occurrence: None)
  Receive Date: 20060117
  Receipt Date: 20050927
  Transmission Date: 20060701
  Serious: Yes (Hospitalization)
  Sender: FDA-Public Use
  Company Number: A03200503084

PATIENT
  Age: 64 Year
  Sex: Male
  Weight: 90.7 kg

DRUGS (7)
  1. PLAVIX [Suspect]
     Indication: STENT PLACEMENT
     Dosage: 75 MG QD ORAL
     Route: 048
     Dates: start: 20050322, end: 20050906
  2. CLONIDINE [Concomitant]
  3. ATENOLOL [Concomitant]
  4. FUROSEMIDE [Concomitant]
  5. ISOSORBIDE [Concomitant]
  6. AMLODIPINE BESYLATE [Concomitant]
  7. ATORVASTATIN CALCIUM [Concomitant]

REACTIONS (6)
  - ANAEMIA [None]
  - ASTHENIA [None]
  - CONTUSION [None]
  - DIZZINESS [None]
  - HAEMATURIA [None]
  - HAEMORRHAGE [None]
